FAERS Safety Report 10299153 (Version 1)
Quarter: 2014Q3

REPORT INFORMATION
  Report Type: Spontaneous
  Country: FR (occurrence: FR)
  Receive Date: 20140711
  Receipt Date: 20140711
  Transmission Date: 20150326
  Serious: Yes (Hospitalization)
  Sender: FDA-Public Use
  Company Number: FR-BRISTOL-MYERS SQUIBB COMPANY-21175054

PATIENT
  Age: 81 Year
  Sex: Male

DRUGS (6)
  1. COUMADINE [Suspect]
     Active Substance: WARFARIN SODIUM
     Dates: end: 20140301
  2. HEMIGOXINE NATIVELLE [Concomitant]
     Active Substance: DIGOXIN
  3. KEPPRA [Concomitant]
     Active Substance: LEVETIRACETAM
  4. KARDEGIC [Concomitant]
     Active Substance: ASPIRIN LYSINE
  5. INEXIUM [Concomitant]
     Active Substance: ESOMEPRAZOLE
  6. EBIXA [Concomitant]
     Active Substance: MEMANTINE HYDROCHLORIDE

REACTIONS (1)
  - Infarction [Recovered/Resolved with Sequelae]

NARRATIVE: CASE EVENT DATE: 20140301
